FAERS Safety Report 5925000-1 (Version None)
Quarter: 2008Q3

REPORT INFORMATION
  Report Type: 
  Country: None (occurrence: None)
  Receive Date: 20080909
  Receipt Date: 20080626
  Transmission Date: 20090109
  Serious: Yes (Death, Hospitalization)
  Sender: FDA-Public Use
  Company Number: 163-20785-08040651

PATIENT
  Age: 16 Year
  Sex: Male

DRUGS (10)
  1. THALOMID [Suspect]
     Indication: BRAIN NEOPLASM
     Dosage: 150 MG, QHS, ORAL
     Route: 048
     Dates: start: 20080403, end: 20080406
  2. CELECOXIB [Suspect]
     Indication: BRAIN NEOPLASM
     Dosage: 200 MG, BID, ORAL
     Route: 048
     Dates: start: 20080403, end: 20080406
  3. FENOFIBRATE [Suspect]
     Indication: BRAIN NEOPLASM
     Dosage: 134 MG, 1 IN 1 D, ORAL
     Route: 048
     Dates: start: 20080403, end: 20080406
  4. ETOPOSIDE [Suspect]
     Indication: BRAIN NEOPLASM
     Dosage: 100 MG, 1 IN 1 D, ORAL
     Route: 048
     Dates: start: 20080403, end: 20080406
  5. PEPCID [Concomitant]
  6. COLACE (DOCUSATE SODIUM) [Concomitant]
  7. MIRALAX [Concomitant]
  8. ZOFRAN [Concomitant]
  9. RITALIN [Concomitant]
  10. DECADRON [Concomitant]

REACTIONS (4)
  - DISEASE PROGRESSION [None]
  - HYDROCEPHALUS [None]
  - HYPOKINESIA [None]
  - PAIN [None]
